FAERS Safety Report 25272485 (Version 1)
Quarter: 2025Q2

REPORT INFORMATION
  Report Type: Spontaneous
  Country: CA (occurrence: None)
  Receive Date: 20250506
  Receipt Date: 20250506
  Transmission Date: 20250716
  Serious: Yes (Hospitalization, Other)
  Sender: ORION
  Company Number: CA-PFIZER INC-202500092788

PATIENT
  Age: 7 Year
  Sex: Male

DRUGS (13)
  1. METHOTREXATE [Suspect]
     Active Substance: METHOTREXATE
     Indication: B-cell type acute leukaemia
  2. METHOTREXATE [Suspect]
     Active Substance: METHOTREXATE
  3. VINCRISTINE SULFATE [Suspect]
     Active Substance: VINCRISTINE SULFATE
     Indication: B-cell type acute leukaemia
  4. DEXTROSE [Suspect]
     Active Substance: DEXTROSE MONOHYDRATE
     Indication: Hypertriglyceridaemia
  5. DEXAMETHASONE [Suspect]
     Active Substance: DEXAMETHASONE
     Indication: B-cell type acute leukaemia
  6. DEXAMETHASONE [Suspect]
     Active Substance: DEXAMETHASONE
     Indication: Haemophagocytic lymphohistiocytosis
  7. DEXAMETHASONE [Suspect]
     Active Substance: DEXAMETHASONE
  8. MINERALS\OMEGA-3 FATTY ACIDS\VITAMINS [Suspect]
     Active Substance: MINERALS\OMEGA-3 FATTY ACIDS\VITAMINS
     Indication: Hypertriglyceridaemia
  9. ICOSAPENT [Suspect]
     Active Substance: ICOSAPENT
     Indication: Hypertriglyceridaemia
  10. GEMFIBROZIL [Suspect]
     Active Substance: GEMFIBROZIL
     Indication: Hypertriglyceridaemia
  11. INSULIN NOS [Suspect]
     Active Substance: INSULIN NOS
     Indication: Hypertriglyceridaemia
  12. MERCAPTOPURINE [Suspect]
     Active Substance: MERCAPTOPURINE
     Indication: B-cell type acute leukaemia
  13. ONCASPAR [Suspect]
     Active Substance: PEGASPARGASE
     Indication: Acute lymphocytic leukaemia

REACTIONS (5)
  - Drug ineffective [Recovered/Resolved]
  - Gastrointestinal disorder [Recovered/Resolved]
  - Hypertransaminasaemia [Recovered/Resolved]
  - Hypertriglyceridaemia [Recovered/Resolved]
  - Increased appetite [Recovered/Resolved]
